FAERS Safety Report 11411056 (Version 2)
Quarter: 2015Q3

REPORT INFORMATION
  Report Type: Spontaneous
  Country: US (occurrence: US)
  Receive Date: 20150821
  Receipt Date: 20150903
  Transmission Date: 20151125
  Serious: No
  Sender: FDA-Public Use
  Company Number: US-ELI_LILLY_AND_COMPANY-US200912004089

PATIENT
  Age: 66 Year
  Sex: Female
  Weight: 81.63 kg

DRUGS (4)
  1. HUMULIN 70/30 [Suspect]
     Active Substance: INSULIN HUMAN
     Indication: DIABETES MELLITUS
     Dosage: UNK, AS NEEDED
     Dates: start: 201001
  2. HUMALOG [Suspect]
     Active Substance: INSULIN LISPRO
  3. ANTIHYPERTENSIVES [Concomitant]
     Active Substance: UNSPECIFIED INGREDIENT
     Indication: HYPERTENSION
  4. HUMULIN 70/30 [Suspect]
     Active Substance: INSULIN HUMAN
     Indication: DIABETES MELLITUS
     Dosage: UNK, AS NEEDED
     Dates: start: 2004

REACTIONS (3)
  - Drug dispensing error [Not Recovered/Not Resolved]
  - Drug dispensing error [Unknown]
  - Incorrect drug dosage form administered [Unknown]

NARRATIVE: CASE EVENT DATE: 20091216
